FAERS Safety Report 10215312 (Version 3)
Quarter: 2014Q2

REPORT INFORMATION
  Report Type: Report from Study
  Country: NL (occurrence: NL)
  Receive Date: 20140603
  Receipt Date: 20140613
  Transmission Date: 20141212
  Serious: Yes (Other)
  Sender: FDA-Public Use
  Company Number: NL-ABBVIE-13P-114-1174480-00

PATIENT
  Age: 39 Year
  Sex: Female
  Weight: 84.5 kg

DRUGS (3)
  1. LUCRIN DEPOT [Suspect]
     Indication: BREAST CANCER FEMALE
     Route: 058
     Dates: start: 20131002, end: 201401
  2. TAMOXIFEN [Suspect]
     Indication: PRODUCT USED FOR UNKNOWN INDICATION
     Route: 048
     Dates: start: 201108
  3. CALCIUM CARBONATE [Concomitant]
     Indication: PRODUCT USED FOR UNKNOWN INDICATION
     Route: 048

REACTIONS (4)
  - Oophorectomy [Unknown]
  - Hot flush [Not Recovered/Not Resolved]
  - Injection site swelling [Recovered/Resolved]
  - Night sweats [Unknown]
